FAERS Safety Report 9087123 (Version 2)
Quarter: 2018Q2

REPORT INFORMATION
  Report Type: Report from Study
  Country: ZA (occurrence: ZA)
  Receive Date: 20130131
  Receipt Date: 20180605
  Transmission Date: 20180711
  Serious: Yes (Death, Hospitalization)
  Sender: FDA-Public Use
  Company Number: ZA-ROCHE-1185051

PATIENT
  Sex: Male

DRUGS (2)
  1. VENOFER [Concomitant]
     Active Substance: IRON SUCROSE
     Route: 065
  2. MIRCERA [Suspect]
     Active Substance: METHOXY POLYETHYLENE GLYCOL-EPOETIN BETA
     Indication: NEPHROGENIC ANAEMIA
     Route: 058
     Dates: end: 201209

REACTIONS (2)
  - Chronic kidney disease [Fatal]
  - Haemoglobin decreased [Unknown]
